FAERS Safety Report 23061876 (Version 1)
Quarter: 2023Q4

REPORT INFORMATION
  Report Type: Spontaneous
  Country: US (occurrence: US)
  Receive Date: 20231013
  Receipt Date: 20231013
  Transmission Date: 20240109
  Serious: Yes (Other)
  Sender: FDA-Public Use
  Company Number: US-ALEMBIC PHARMACUETICALS LIMITED-2023SCAL000842

PATIENT

DRUGS (1)
  1. HYDROCHLOROTHIAZIDE [Suspect]
     Active Substance: HYDROCHLOROTHIAZIDE
     Indication: Product used for unknown indication
     Dosage: UNK
     Route: 065

REACTIONS (9)
  - Encephalopathy [Unknown]
  - Respiratory failure [Unknown]
  - Hypokalaemia [Unknown]
  - Respiratory acidosis [Unknown]
  - Asthenia [Unknown]
  - Fatigue [Unknown]
  - Hyponatraemia [Unknown]
  - Metabolic alkalosis [Unknown]
  - Hypochloraemia [Unknown]
